FAERS Safety Report 12606475 (Version 2)
Quarter: 2016Q3

REPORT INFORMATION
  Report Type: Report from Study
  Country: BR (occurrence: BR)
  Receive Date: 20160729
  Receipt Date: 20160802
  Transmission Date: 20161109
  Serious: Yes (Other)
  Sender: FDA-Public Use
  Company Number: ALCN2016BR005110

PATIENT
  Age: 59 Year
  Sex: Female
  Weight: 58 kg

DRUGS (5)
  1. VITALUX PLUS [Suspect]
     Active Substance: VITAMINS
     Indication: PRODUCT USED FOR UNKNOWN INDICATION
     Dosage: 1 DF, ONCE/SINGLE
     Route: 048
     Dates: start: 20160714, end: 20160714
  2. NESINA [Concomitant]
     Active Substance: ALOGLIPTIN BENZOATE
     Indication: DIABETES MELLITUS
     Dosage: 25 MG, QD
     Route: 065
  3. MILGAMMA [Concomitant]
     Active Substance: VITAMIN B
     Indication: PRODUCT USED FOR UNKNOWN INDICATION
     Dosage: 2 DF, QD
     Route: 065
  4. ARADOIS [Concomitant]
     Active Substance: LOSARTAN POTASSIUM
     Indication: HYPERTENSION
     Dosage: (DAILY AT MORNING, STARTED 8 YEAR AGO))
     Route: 065
  5. GLIFAGE [Concomitant]
     Active Substance: METFORMIN HYDROCHLORIDE
     Indication: DIABETES MELLITUS
     Dosage: 500 MG, BID (STARTED 8 YEAR AGO)
     Route: 065

REACTIONS (10)
  - Parapsoriasis [Recovering/Resolving]
  - Hypersensitivity [Recovering/Resolving]
  - Pain [Recovering/Resolving]
  - Lip swelling [Recovering/Resolving]
  - Peripheral swelling [Recovering/Resolving]
  - Eye swelling [Recovering/Resolving]
  - Pain of skin [Recovering/Resolving]
  - Pruritus [Recovering/Resolving]
  - Swelling face [Recovering/Resolving]
  - Nervousness [Unknown]

NARRATIVE: CASE EVENT DATE: 20160715
